FAERS Safety Report 5672399-X (Version None)
Quarter: 2008Q1

REPORT INFORMATION
  Report Type: 
  Country: None (occurrence: None)
  Receive Date: 20080318
  Receipt Date: 20080318
  Transmission Date: 20080703
  Serious: No
  Sender: FDA-Public Use
  Company Number: None

PATIENT
  Age: 45 Year
  Sex: Female
  Weight: 81.6475 kg

DRUGS (2)
  1. DURAGESIC-100 [Suspect]
     Indication: PAIN
     Dosage: 100 UCG 48 HOURS TRANSDERMAL
     Route: 062
     Dates: start: 20010601, end: 20030301
  2. DURAGESIC-100 [Suspect]
     Indication: PAIN
     Dosage: 100 UCG 48 HOURS TRANSDERMAL
     Route: 062
     Dates: start: 20030301, end: 20050701

REACTIONS (8)
  - BREAKTHROUGH PAIN [None]
  - DEVICE LEAKAGE [None]
  - PHARMACEUTICAL PRODUCT COMPLAINT [None]
  - SKIN INFECTION [None]
  - SKIN IRRITATION [None]
  - THERMAL BURN [None]
  - UNDERDOSE [None]
  - WITHDRAWAL SYNDROME [None]
